FAERS Safety Report 6805070-9 (Version None)
Quarter: 2010Q2

REPORT INFORMATION
  Report Type: 
  Country: None (occurrence: None)
  Receive Date: 20100628
  Receipt Date: 20100628
  Transmission Date: 20101027
  Serious: No
  Sender: FDA-Public Use
  Company Number: None

PATIENT
  Sex: Female
  Weight: 108.8633 kg

DRUGS (1)
  1. NASONEX [Suspect]

REACTIONS (3)
  - APPLICATION SITE PAIN [None]
  - DEVICE DIFFICULT TO USE [None]
  - PRODUCT QUALITY ISSUE [None]
